FAERS Safety Report 21838933 (Version 1)
Quarter: 2023Q1

REPORT INFORMATION
  Report Type: Spontaneous
  Country: US (occurrence: US)
  Receive Date: 20230109
  Receipt Date: 20230109
  Transmission Date: 20230418
  Serious: No
  Sender: FDA-Public Use
  Company Number: US-JNJFOC-20230106745

PATIENT
  Age: 78 Year
  Sex: Female

DRUGS (1)
  1. TOPAMAX [Suspect]
     Active Substance: TOPIRAMATE
     Indication: Product used for unknown indication
     Route: 048
     Dates: start: 2022

REACTIONS (3)
  - Adverse event [Unknown]
  - Cognitive disorder [Unknown]
  - Fatigue [Unknown]
